FAERS Safety Report 5257356-X (Version None)
Quarter: 2007Q1

REPORT INFORMATION
  Report Type: 
  Country: None (occurrence: None)
  Receive Date: 20061214
  Receipt Date: 20060426
  Transmission Date: 20070707
  Serious: Yes (Other)
  Sender: FDA-Public Use
  Company Number: 2006056081

PATIENT
  Sex: Female

DRUGS (1)
  1. UNISOM [Suspect]
     Dosage: 30, ORAL
     Route: 048

REACTIONS (1)
  - OVERDOSE [None]
